FAERS Safety Report 25123839 (Version 1)
Quarter: 2025Q1

REPORT INFORMATION
  Report Type: Spontaneous
  Country: FR (occurrence: FR)
  Receive Date: 20250326
  Receipt Date: 20250326
  Transmission Date: 20250408
  Serious: Yes (Other)
  Sender: RANBAXY
  Company Number: FR-SUN PHARMACEUTICAL INDUSTRIES LTD-2025R1-497056

PATIENT
  Age: 9 Year
  Sex: Female

DRUGS (1)
  1. CAFFEINE [Suspect]
     Active Substance: CAFFEINE
     Indication: Dyskinesia
     Dosage: 2.5 MILLIGRAM/KILOGRAM, DAILY
     Route: 065

REACTIONS (1)
  - Condition aggravated [Unknown]
